FAERS Safety Report 5487785-0 (Version None)
Quarter: 2007Q3

REPORT INFORMATION
  Report Type: 
  Country: None (occurrence: None)
  Receive Date: 20070925
  Receipt Date: 20070808
  Transmission Date: 20080115
  Serious: No
  Sender: FDA-Public Use
  Company Number: 2007US001873

PATIENT
  Sex: Female

DRUGS (11)
  1. VESICARE [Suspect]
     Indication: HYPERTONIC BLADDER
     Dosage: 5 MG, UID/QD, ORAL
     Route: 048
     Dates: start: 20070701
  2. PROCARDIA XL [Concomitant]
  3. LEXAPRO [Concomitant]
  4. LISINOPRIL (LISINOPRIL DIHYDRATE) [Concomitant]
  5. ISOSORBIDE (ISOSORBIDE) [Concomitant]
  6. PERCOCET-5 (OXYCODONE TEREPHTHALATE, OXYCODONE HYDROCHLORIDE) [Concomitant]
  7. GLUCOSAMINE (COD-LIVER OIL) [Concomitant]
  8. CENTRUM SILVER (ASCORBIC ACID, MINERALS NOS, VITAMINS NOS, VITAMIN B N [Concomitant]
  9. CALTRATE (VITAMIN D NOS, CALCIUM) [Concomitant]
  10. TRAVATAN [Concomitant]
  11. ALPHAGAN P [Concomitant]

REACTIONS (3)
  - DRUG INEFFECTIVE [None]
  - INSOMNIA [None]
  - NOCTURIA [None]
